FAERS Safety Report 5526840-3 (Version None)
Quarter: 2008Q1

REPORT INFORMATION
  Report Type: 
  Country: None (occurrence: None)
  Receive Date: 20071127
  Receipt Date: 20071116
  Transmission Date: 20080703
  Serious: Yes (Other)
  Sender: FDA-Public Use
  Company Number: JP-PFIZER INC-2007095736

PATIENT
  Sex: Female
  Weight: 51 kg

DRUGS (10)
  1. SILDENAFIL CITRATE [Suspect]
     Indication: PULMONARY HYPERTENSION
     Dosage: DAILY DOSE:37.5MG
     Dates: start: 20041003, end: 20050910
  2. ALDACTONE [Suspect]
     Indication: PULMONARY HYPERTENSION
     Route: 048
  3. TRACLEER [Suspect]
     Indication: PULMONARY HYPERTENSION
     Dosage: DAILY DOSE:250MG
     Route: 048
  4. FERROUS SULFATE TAB [Suspect]
     Indication: ANAEMIA
     Route: 048
  5. KOLANTYL [Suspect]
     Indication: GASTRITIS PROPHYLAXIS
     Dosage: DAILY DOSE:3GRAM
     Route: 048
  6. LASIX [Suspect]
     Indication: PULMONARY HYPERTENSION
     Route: 048
  7. MERISLON [Suspect]
     Indication: DIZZINESS
     Route: 048
  8. LANSOPRAZOLE [Suspect]
     Indication: GASTRITIS
     Route: 048
  9. CYANOCOBALAMIN [Suspect]
     Indication: NEUROPATHY PERIPHERAL
     Route: 048
  10. FLOMOX [Suspect]
     Indication: INFECTION
     Route: 048

REACTIONS (2)
  - SUDDEN HEARING LOSS [None]
  - TINNITUS [None]
